FAERS Safety Report 9377509 (Version 1)
Quarter: 2013Q3

REPORT INFORMATION
  Report Type: Spontaneous
  Country: FR (occurrence: FR)
  Receive Date: 20130701
  Receipt Date: 20130701
  Transmission Date: 20140515
  Serious: Yes (Hospitalization)
  Sender: FDA-Public Use
  Company Number: PHHY2013FR066621

PATIENT
  Age: 44 Year
  Sex: Female

DRUGS (7)
  1. EXFORGE [Suspect]
     Dosage: 1 DF (160MG VALSA/ 5MG AMLO), QD
     Route: 048
     Dates: end: 20110216
  2. METFORMIN [Suspect]
     Dosage: 1 DF, TID
     Route: 048
  3. GLICLAZIDE [Suspect]
     Dosage: 1 DF, QID
     Route: 048
     Dates: end: 20110216
  4. NIZORAL [Suspect]
     Indication: HYPERCORTICOIDISM
     Dosage: 1 DF, TID
     Route: 048
     Dates: start: 200901, end: 20110216
  5. NIZORAL [Suspect]
     Indication: OFF LABEL USE
  6. JANUVIA [Suspect]
     Dosage: 100 MG, QD
     Route: 048
     Dates: start: 201101, end: 20110210
  7. TAHOR [Suspect]
     Dosage: 40 MG, QID
     Route: 048
     Dates: start: 201101

REACTIONS (1)
  - Interstitial lung disease [Recovered/Resolved]
